FAERS Safety Report 7804496-4 (Version None)
Quarter: 2011Q4

REPORT INFORMATION
  Report Type: 
  Country: None (occurrence: None)
  Receive Date: 20111010
  Receipt Date: 20110930
  Transmission Date: 20120403
  Serious: Yes (Hospitalization, Other)
  Sender: FDA-Public Use
  Company Number: PHHY2011AU74407

PATIENT
  Sex: Female

DRUGS (7)
  1. DULOXETIME HYDROCHLORIDE [Concomitant]
     Indication: DEPRESSION
     Dosage: 60 MG, MANE
     Route: 048
  2. METFORMIN HYDROCHLORIDE [Concomitant]
     Indication: DIABETES MELLITUS
     Dosage: 1 G, TDS
     Route: 048
  3. CLOZAPINE [Suspect]
     Indication: SCHIZOPHRENIA
     Dosage: 300 MG
     Route: 048
     Dates: start: 20081119
  4. ATORVASTATIN [Concomitant]
     Indication: BLOOD CHOLESTEROL INCREASED
     Dosage: 20 MG, MANE
     Route: 048
  5. DILTIAZEM HCL [Concomitant]
     Indication: HYPERTENSION
     Dosage: 60 MG, BD
     Route: 048
  6. CLOZAPINE [Suspect]
     Dosage: 250 MG,
     Route: 048
     Dates: start: 20110816
  7. ACETAMINOPHEN [Concomitant]
     Indication: PAIN
     Dosage: 1 G, QID
     Route: 048

REACTIONS (9)
  - BUNDLE BRANCH BLOCK LEFT [None]
  - C-REACTIVE PROTEIN INCREASED [None]
  - FALL [None]
  - SYNCOPE [None]
  - ORTHOSTATIC HYPOTENSION [None]
  - ANTIPSYCHOTIC DRUG LEVEL ABOVE THERAPEUTIC [None]
  - LIMB INJURY [None]
  - OEDEMA PERIPHERAL [None]
  - BACK INJURY [None]
